FAERS Safety Report 9355582 (Version 1)
Quarter: 2013Q2

REPORT INFORMATION
  Report Type: Spontaneous
  Country: FR (occurrence: FR)
  Receive Date: 20130619
  Receipt Date: 20130619
  Transmission Date: 20140414
  Serious: Yes (Death)
  Sender: FDA-Public Use
  Company Number: FR-SANOFI-AVENTIS-2013SA059899

PATIENT
  Age: 64 Year
  Sex: 0

DRUGS (2)
  1. TORENTAL LP [Suspect]
     Indication: PRODUCT USED FOR UNKNOWN INDICATION
     Route: 048
  2. PREVISCAN [Interacting]
     Indication: PRODUCT USED FOR UNKNOWN INDICATION
     Route: 048
     Dates: end: 20110525

REACTIONS (10)
  - Drug interaction [Fatal]
  - Neurological decompensation [Fatal]
  - Subarachnoid haemorrhage [None]
  - Cerebral ventricle dilatation [None]
  - Pneumonia [None]
  - Myocardial infarction [None]
  - Cardiac arrest [None]
  - Ejection fraction decreased [None]
  - Brain stem ischaemia [None]
  - Cardiac ventricular disorder [None]
